FAERS Safety Report 7964032-9 (Version None)
Quarter: 2011Q4

REPORT INFORMATION
  Report Type: 
  Country: None (occurrence: None)
  Receive Date: 20111208
  Receipt Date: 20111128
  Transmission Date: 20120403
  Serious: Yes (Hospitalization)
  Sender: FDA-Public Use
  Company Number: US-BAYER-2011-080576

PATIENT
  Age: 43 Year
  Sex: Female
  Weight: 68.027 kg

DRUGS (2)
  1. YASMIN [Suspect]
     Indication: CONTRACEPTION
     Dosage: UNK
     Dates: start: 20020601, end: 20020801
  2. XANAX [Concomitant]
     Dosage: 0.5 MG, QD

REACTIONS (7)
  - PAIN [None]
  - ANXIETY [None]
  - PULMONARY EMBOLISM [None]
  - ANHEDONIA [None]
  - MUSCULOSKELETAL PAIN [None]
  - INJURY [None]
  - DYSPNOEA [None]
